FAERS Safety Report 4551904-0 (Version None)
Quarter: 2005Q1

REPORT INFORMATION
  Report Type: 
  Country: None (occurrence: None)
  Receive Date: 20050110
  Receipt Date: 20040531
  Transmission Date: 20050727
  Serious: Yes (Hospitalization)
  Sender: FDA-Public Use
  Company Number: 2004027924

PATIENT
  Age: 24 Year
  Sex: Female
  Weight: 40 kg

DRUGS (9)
  1. ZIPRASIDONE (ZIPRASIDONE) [Suspect]
     Indication: SCHIZOPHRENIA
     Dosage: SEE IMAGE
     Route: 048
     Dates: start: 20040420, end: 20040425
  2. ZIPRASIDONE (ZIPRASIDONE) [Suspect]
     Indication: SCHIZOPHRENIA
     Dosage: SEE IMAGE
     Route: 048
     Dates: start: 20040426, end: 20040428
  3. ZIPRASIDONE (ZIPRASIDONE) [Suspect]
     Indication: SCHIZOPHRENIA
     Dosage: SEE IMAGE
     Route: 048
     Dates: start: 20040413, end: 20040503
  4. ZIPRASIDONE (ZIPRASIDONE) [Suspect]
     Indication: SCHIZOPHRENIA
     Dosage: SEE IMAGE
     Route: 048
     Dates: start: 20040429, end: 20040503
  5. HALOPERIDOL [Suspect]
     Indication: ILL-DEFINED DISORDER
     Dosage: SEE IMAGE
     Route: 030
     Dates: start: 20040406, end: 20040407
  6. HALOPERIDOL [Suspect]
     Indication: ILL-DEFINED DISORDER
     Dosage: SEE IMAGE
     Route: 030
     Dates: start: 20040410, end: 20040412
  7. HALOPERIDOL [Suspect]
     Indication: ILL-DEFINED DISORDER
     Dosage: SEE IMAGE
     Route: 030
     Dates: start: 20040408, end: 20040503
  8. CLONAZEPAM [Concomitant]
  9. BIPERIDEN (BIPERIDEN) [Concomitant]

REACTIONS (7)
  - ABNORMAL BEHAVIOUR [None]
  - DELIRIUM [None]
  - DISEASE RECURRENCE [None]
  - DRUG INTERACTION [None]
  - HALLUCINATIONS, MIXED [None]
  - PARANOIA [None]
  - PSYCHOTIC DISORDER [None]
